FAERS Safety Report 6577543-8 (Version None)
Quarter: 2010Q1

REPORT INFORMATION
  Report Type: 
  Country: None (occurrence: None)
  Receive Date: 20100211
  Receipt Date: 20100125
  Transmission Date: 20100710
  Serious: No
  Sender: FDA-Public Use
  Company Number: US-JNJFOC-20100110945

PATIENT
  Sex: Female
  Weight: 90.72 kg

DRUGS (13)
  1. SANDOZ FENTANYL TRANSDERMAL SYSTEM [Suspect]
     Indication: PAIN
     Route: 062
  2. ULTRAM [Concomitant]
     Indication: BREAKTHROUGH PAIN
     Route: 048
  3. TYLENOL-500 [Concomitant]
     Indication: PAIN
     Route: 048
  4. LISINOPRIL [Concomitant]
     Indication: HYPERTENSION
     Route: 048
  5. NOVOLOG [Concomitant]
     Indication: DIABETES MELLITUS
     Dosage: 14 UNITS
     Route: 058
  6. LANTUS [Concomitant]
     Indication: DIABETES MELLITUS
     Route: 058
  7. METFORMIN HCL [Concomitant]
     Indication: DIABETES MELLITUS
     Route: 048
  8. FLEXERIL [Concomitant]
     Indication: MUSCLE SPASMS
     Route: 048
  9. NEURONTIN [Concomitant]
     Indication: NEUROPATHY PERIPHERAL
     Route: 048
  10. ZOLOFT [Concomitant]
     Indication: ANXIETY
     Route: 048
  11. CRESTOR [Concomitant]
     Indication: BLOOD CHOLESTEROL INCREASED
     Route: 048
  12. KLONOPIN [Concomitant]
     Indication: ANXIETY
     Route: 048
  13. NEXIUM [Concomitant]
     Indication: GASTROOESOPHAGEAL REFLUX DISEASE
     Route: 048

REACTIONS (3)
  - BREAKTHROUGH PAIN [None]
  - PRODUCT ADHESION ISSUE [None]
  - WRONG TECHNIQUE IN DRUG USAGE PROCESS [None]
